FAERS Safety Report 5167543-7 (Version None)
Quarter: 2006Q4

REPORT INFORMATION
  Report Type: 
  Country: None (occurrence: None)
  Receive Date: 20060830
  Receipt Date: 20060504
  Transmission Date: 20070319
  Serious: Yes (Other)
  Sender: FDA-Public Use
  Company Number: 224212

PATIENT
  Age: 65 Year
  Sex: Male

DRUGS (10)
  1. XOLAIR [Suspect]
     Indication: ASTHMA
     Dosage: 375 MG Q2W SUBCUTANEOUS
     Route: 058
     Dates: start: 20040902
  2. ALLEGRA [Concomitant]
  3. ASTELIN [Concomitant]
  4. COLCHICINE (COLCHICINE) [Concomitant]
  5. FLOVENT [Concomitant]
  6. ISMO [Concomitant]
  7. NITROSTAT [Concomitant]
  8. PRILOSEC [Concomitant]
  9. PROCARDIA XL [Concomitant]
  10. PROVENTIL HFA (ALBUTEROL/ALBUTEROL SULFATE) [Concomitant]

REACTIONS (1)
  - SMALL CELL LUNG CANCER STAGE UNSPECIFIED [None]
